FAERS Safety Report 6865202-3 (Version None)
Quarter: 2010Q3

REPORT INFORMATION
  Report Type: 
  Country: None (occurrence: None)
  Receive Date: 20100721
  Receipt Date: 20080610
  Transmission Date: 20110219
  Serious: Yes (Other)
  Sender: FDA-Public Use
  Company Number: US-PFIZER INC-2008032276

PATIENT
  Sex: Female
  Weight: 83.9 kg

DRUGS (3)
  1. CHANTIX [Suspect]
     Indication: SMOKING CESSATION THERAPY
     Dates: start: 20080301
  2. LITHIUM [Concomitant]
     Indication: DEPRESSION
  3. CLONAZEPAM [Concomitant]

REACTIONS (3)
  - ABNORMAL DREAMS [None]
  - LETHARGY [None]
  - SUICIDAL IDEATION [None]
